FAERS Safety Report 16917230 (Version 1)
Quarter: 2019Q4

REPORT INFORMATION
  Report Type: Spontaneous
  Country: FR (occurrence: FR)
  Receive Date: 20191015
  Receipt Date: 20191015
  Transmission Date: 20200122
  Serious: Yes (Death, Hospitalization)
  Sender: FDA-Public Use
  Company Number: FR-TEVA-2019-FR-1120870

PATIENT
  Age: 61 Year
  Sex: Female
  Weight: 89.5 kg

DRUGS (7)
  1. CANDESARTAN CILEXETIL. [Suspect]
     Active Substance: CANDESARTAN CILEXETIL
     Indication: HYPERTENSION
     Dosage: 16 MG 1 DAYS
     Route: 048
  2. LANSOPRAZOLE. [Suspect]
     Active Substance: LANSOPRAZOLE
     Dosage: 30 MG 1 DAYS
     Route: 048
     Dates: end: 20190821
  3. AMLODIPINE [Suspect]
     Active Substance: AMLODIPINE BESYLATE
     Indication: HYPERTENSION
     Dosage: 10 MG 1 DAYS
     Route: 048
     Dates: end: 20190816
  4. MACROGOL (STEARATE DE) [Suspect]
     Active Substance: POLYETHYLENE GLYCOLS
     Indication: CONSTIPATION
     Dosage: 1 DOSAGE FORMS 1 DAYS
     Route: 048
     Dates: end: 20190821
  5. CYANOCOBALAMINE [Suspect]
     Active Substance: CYANOCOBALAMIN
     Indication: VITAMIN SUPPLEMENTATION
     Dosage: 250 MG 1 DAYS
     Route: 048
     Dates: end: 20190822
  6. MEKINIST [Suspect]
     Active Substance: TRAMETINIB DIMETHYL SULFOXIDE
     Indication: METASTATIC MALIGNANT MELANOMA
     Dosage: 1 DOSAGE FORMS 1 DAYS
     Route: 048
     Dates: start: 201905, end: 20190815
  7. TAFINLAR [Suspect]
     Active Substance: DABRAFENIB MESYLATE
     Indication: METASTATIC MALIGNANT MELANOMA
     Dosage: 250 MG 1 DAYS
     Route: 048
     Dates: start: 201905, end: 20190815

REACTIONS (1)
  - Myocarditis [Not Recovered/Not Resolved]

NARRATIVE: CASE EVENT DATE: 20190815
